FAERS Safety Report 4528329-7 (Version None)
Quarter: 2004Q4

REPORT INFORMATION
  Report Type: 
  Country: None (occurrence: None)
  Receive Date: 20041130
  Receipt Date: 20040806
  Transmission Date: 20050328
  Serious: No
  Sender: FDA-Public Use
  Company Number: WAES 0408USA00624

PATIENT
  Age: 68 Year
  Sex: Female
  Weight: 74.3899 kg

DRUGS (7)
  1. ZETIA [Suspect]
     Indication: DYSLIPIDAEMIA
     Dosage: 10 MG DAILY PO
     Route: 048
     Dates: start: 20031105, end: 20040312
  2. MAXAIR [Concomitant]
  3. MICARDIS HCT [Concomitant]
  4. NORVASC [Concomitant]
  5. REFRESH TEARS LUBRICANT EYE DROPS [Concomitant]
  6. XALATAN [Concomitant]
  7. LABETALOL HYDROCHLORIDE [Concomitant]

REACTIONS (3)
  - ALANINE AMINOTRANSFERASE INCREASED [None]
  - BLOOD CREATINE PHOSPHOKINASE INCREASED [None]
  - MYOSITIS [None]
